FAERS Safety Report 24602824 (Version 2)
Quarter: 2024Q4

REPORT INFORMATION
  Report Type: Spontaneous
  Country: US (occurrence: US)
  Receive Date: 20241111
  Receipt Date: 20241113
  Transmission Date: 20250114
  Serious: No
  Sender: BAYER HEALTHCARE LLC
  Company Number: US-BAYER-2024A160533

PATIENT

DRUGS (1)
  1. MIRALAX [Suspect]
     Active Substance: POLYETHYLENE GLYCOL 3350
     Indication: Irritable bowel syndrome
     Dosage: UNK, BID
     Route: 065

REACTIONS (2)
  - Incorrect dose administered [Unknown]
  - Product use in unapproved indication [Unknown]
